FAERS Safety Report 7712380 (Version 2)
Quarter: 2013Q3

REPORT INFORMATION
  Report Type: Report from Study
  Country: DE (occurrence: DE)
  Receive Date: 20101208
  Receipt Date: 20130801
  Transmission Date: 20140515
  Serious: Yes (Death, Other)
  Sender: FDA-Public Use
  Company Number: PHHO2009DE03153

PATIENT
  Age: 28 Year
  Sex: Female
  Weight: 69 kg

DRUGS (4)
  1. PLACEBO [Suspect]
     Indication: PULMONARY HYPERTENSION
     Dosage: NO TREATMENT
     Route: 048
     Dates: start: 20070206
  2. GLEEVEC [Suspect]
     Indication: PULMONARY HYPERTENSION
     Dosage: UNK
  3. BOSENTAN [Concomitant]
  4. REVATIO [Concomitant]

REACTIONS (5)
  - Cardiac arrest [Fatal]
  - Pulmonary hypertension [Fatal]
  - Hypertension [Fatal]
  - Right ventricular failure [Fatal]
  - Presyncope [Recovered/Resolved]
